FAERS Safety Report 5059881-3 (Version None)
Quarter: 2006Q3

REPORT INFORMATION
  Report Type: 
  Country: None (occurrence: None)
  Receive Date: 20060724
  Receipt Date: 20060616
  Transmission Date: 20061208
  Serious: Yes (Hospitalization)
  Sender: FDA-Public Use
  Company Number: FR-SANOFI-SYNTHELABO-F01200601474

PATIENT
  Sex: Female

DRUGS (13)
  1. SMECTA [Concomitant]
     Dosage: UNK UNK
     Route: 065
     Dates: start: 20050316
  2. DIFFU K [Concomitant]
     Dosage: UNK
     Route: 065
     Dates: start: 20050727
  3. CLINOMEL [Concomitant]
     Dosage: UNK
     Route: 065
     Dates: start: 20050426, end: 20050801
  4. TARGOCID [Concomitant]
     Dosage: UNK
     Route: 065
     Dates: start: 20050721, end: 20050728
  5. OMEPRAZOLE [Concomitant]
     Dosage: UNK
     Route: 065
     Dates: start: 20050718
  6. SPASFON [Concomitant]
     Dosage: UNK
     Route: 065
     Dates: start: 20050718, end: 20050729
  7. VOGALENE [Concomitant]
     Dosage: UNK
     Route: 065
     Dates: start: 20050718
  8. ZOPHREN [Concomitant]
     Dosage: UNK
     Route: 065
     Dates: start: 20050718, end: 20050801
  9. DI-ANTALVIC [Concomitant]
     Dosage: UNK
     Route: 065
     Dates: start: 20050526
  10. TINZAPARIN SODIUM [Concomitant]
     Dosage: UNK
     Route: 065
     Dates: start: 20050727
  11. LEUCOVORIN CALCIUM [Suspect]
     Dosage: UNK
     Route: 042
     Dates: start: 20050727, end: 20050727
  12. FLUOROURACIL [Suspect]
     Dosage: 400 MG/M2 AS BOLUS FOLLOWED BY 2400 MG/M2 AS IV INFUSION, Q2W UNK
     Route: 042
     Dates: start: 20050727, end: 20050727
  13. OXALIPLATIN [Suspect]
     Indication: COLORECTAL CANCER METASTATIC
     Dosage: 100 MG/M2 Q2W UNK
     Route: 042
     Dates: start: 20050727, end: 20050727

REACTIONS (4)
  - COLORECTAL CANCER [None]
  - GENERAL PHYSICAL HEALTH DETERIORATION [None]
  - MALIGNANT NEOPLASM PROGRESSION [None]
  - NEUTROPENIA [None]
